FAERS Safety Report 6953257-7 (Version None)
Quarter: 2010Q3

REPORT INFORMATION
  Report Type: 
  Country: None (occurrence: None)
  Receive Date: 20100829
  Receipt Date: 20100609
  Transmission Date: 20110219
  Serious: No
  Sender: FDA-Public Use
  Company Number: US-ABBOTT-10P-163-0649967-00

PATIENT
  Sex: Male
  Weight: 84.444 kg

DRUGS (7)
  1. NIASPAN [Suspect]
     Indication: HIGH DENSITY LIPOPROTEIN DECREASED
     Dosage: 1 IN 1D, AT BEDTIME
     Dates: start: 20090601, end: 20091201
  2. NIASPAN [Suspect]
     Dosage: 2 IN 1D,  AT BEDTIME
     Dates: start: 20091201, end: 20100501
  3. NIASPAN [Suspect]
     Dosage: 2 IN 1D,  AT BEDTIME
     Dates: start: 20100501
  4. CRESTOR [Concomitant]
     Indication: PRODUCT USED FOR UNKNOWN INDICATION
  5. DOXEPIN HCL [Concomitant]
     Indication: INSOMNIA
  6. DOXEPIN HCL [Concomitant]
  7. PRILOSEC [Concomitant]
     Indication: PRODUCT USED FOR UNKNOWN INDICATION

REACTIONS (8)
  - ARTHRALGIA [None]
  - DRUG DOSE OMISSION [None]
  - FLUSHING [None]
  - HYPOAESTHESIA [None]
  - INTERVERTEBRAL DISC PROTRUSION [None]
  - MUSCULOSKELETAL PAIN [None]
  - PAIN IN EXTREMITY [None]
  - PRURITUS [None]
